FAERS Safety Report 22676310 (Version 5)
Quarter: 2024Q3

REPORT INFORMATION
  Report Type: Spontaneous
  Country: US (occurrence: US)
  Receive Date: 20230706
  Receipt Date: 20240829
  Transmission Date: 20241017
  Serious: No
  Sender: BRISTOL MYERS SQUIBB
  Company Number: US-BRISTOL-MYERS SQUIBB COMPANY-2023-094875

PATIENT
  Age: 63 Year
  Sex: Female
  Weight: 107.5 kg

DRUGS (2)
  1. REVLIMID [Suspect]
     Active Substance: LENALIDOMIDE
     Indication: Plasma cell myeloma
     Dosage: QD D1-21ON7DOFF
     Route: 048
  2. REVLIMID [Suspect]
     Active Substance: LENALIDOMIDE
     Route: 048
     Dates: start: 20230601

REACTIONS (6)
  - Constipation [Unknown]
  - Feeling hot [Not Recovered/Not Resolved]
  - Hot flush [Unknown]
  - Memory impairment [Unknown]
  - Sinusitis [Recovered/Resolved]
  - Hyperhidrosis [Unknown]
